FAERS Safety Report 10650641 (Version 2)
Quarter: 2014Q4

REPORT INFORMATION
  Report Type: Report from Study
  Country: US (occurrence: US)
  Receive Date: 20141214
  Receipt Date: 20141219
  Transmission Date: 20150529
  Serious: Yes (Hospitalization)
  Sender: FDA-Public Use
  Company Number: US-009507513-1412USA003281

PATIENT
  Age: 84 Year
  Sex: Male
  Weight: 66.1 kg

DRUGS (27)
  1. PEMBROLIZUMAB. [Suspect]
     Active Substance: PEMBROLIZUMAB
     Dosage: 10 MG/KG, QOW
     Route: 042
     Dates: start: 20141111, end: 20141111
  2. LACTULOSE. [Concomitant]
     Active Substance: LACTULOSE
     Dosage: 15 ML, QD
     Route: 048
     Dates: start: 20131001
  3. LEVOTHYROXINE SODIUM. [Concomitant]
     Active Substance: LEVOTHYROXINE SODIUM
     Indication: HYPOTHYROIDISM
     Dosage: 75 MICROGRAM, QD
     Route: 048
     Dates: start: 20140218
  4. HYDROXYZINE [Concomitant]
     Active Substance: HYDROXYZINE\HYDROXYZINE HYDROCHLORIDE
     Indication: PRURITUS
     Dosage: TOTAL DAILY DOSE 25MG, UNKNOWN
     Route: 048
     Dates: start: 20140409
  5. PEMBROLIZUMAB. [Suspect]
     Active Substance: PEMBROLIZUMAB
     Dosage: 10 MG/KG, QOW
     Route: 042
     Dates: start: 20141125, end: 20141125
  6. FEBUXOSTAT. [Concomitant]
     Active Substance: FEBUXOSTAT
     Indication: GOUT
     Dosage: 80 MG, QD
     Route: 048
     Dates: start: 201307
  7. DOCUSATE SODIUM (+) SENNOSIDES [Concomitant]
     Indication: CONSTIPATION PROPHYLAXIS
     Dosage: 1 TABLET, BID
     Route: 048
     Dates: start: 20130810
  8. BUMETANIDE. [Concomitant]
     Active Substance: BUMETANIDE
     Indication: CARDIAC FAILURE CONGESTIVE
     Dosage: 1.5 MG, BID
     Route: 048
     Dates: start: 20130814
  9. POTASSIUM CHLORIDE. [Concomitant]
     Active Substance: POTASSIUM CHLORIDE
     Indication: HYPOKALAEMIA
     Dosage: TOTAL DAILY DOSE 60 MILLIEQUIVALENT, PRN
     Route: 048
     Dates: start: 20130820
  10. OMEPRAZOLE. [Concomitant]
     Active Substance: OMEPRAZOLE
     Indication: GASTROOESOPHAGEAL REFLUX DISEASE
     Dosage: 40 MG, QD
     Route: 048
     Dates: start: 201306
  11. PRAMIPEXOLE [Concomitant]
     Active Substance: PRAMIPEXOLE
     Dosage: 0.25 MG, TID
     Route: 048
     Dates: start: 20130612
  12. PEMBROLIZUMAB. [Suspect]
     Active Substance: PEMBROLIZUMAB
     Indication: HEAD AND NECK CANCER
     Dosage: 10 MG/KG, QOW
     Route: 042
     Dates: start: 20130723, end: 20141028
  13. DOCUSATE SODIUM (+) SENNOSIDES [Concomitant]
     Dosage: 2 TABLET, BID
     Route: 048
     Dates: start: 20140813
  14. TYLENOL [Concomitant]
     Active Substance: ACETAMINOPHEN
     Indication: PAIN
     Dosage: 2 TABLETS, QD
     Route: 048
     Dates: start: 20140610
  15. FEXOFENADINE HYDROCHLORIDE. [Concomitant]
     Active Substance: FEXOFENADINE HYDROCHLORIDE
     Indication: CHRONIC SINUSITIS
     Dosage: 180 MG, QD
     Route: 048
     Dates: start: 201307
  16. MONTELUKAST [Concomitant]
     Active Substance: MONTELUKAST SODIUM
     Dosage: 10 MG, QD
     Route: 048
     Dates: start: 201306
  17. TAMSULOSIN HYDROCHLORIDE. [Concomitant]
     Active Substance: TAMSULOSIN HYDROCHLORIDE
     Indication: BENIGN PROSTATIC HYPERPLASIA
     Dosage: 0.4 MG, QD
     Route: 048
     Dates: start: 20130612
  18. MUPIROCIN. [Concomitant]
     Active Substance: MUPIROCIN
     Indication: ORAL SURGERY
     Dosage: TOTAL DAILY DOSE 1 APPLICATION, OTHER
     Route: 061
     Dates: start: 20140429
  19. DONEPEZIL HYDROCHLORIDE. [Concomitant]
     Active Substance: DONEPEZIL HYDROCHLORIDE
     Indication: DEMENTIA
     Dosage: 10 MG, QD
     Route: 048
     Dates: start: 20131112
  20. POTASSIUM CHLORIDE. [Concomitant]
     Active Substance: POTASSIUM CHLORIDE
     Dosage: 20MEQ, QD
     Route: 048
     Dates: start: 20140610
  21. ARTIFICIAL TEARS (MINERAL OIL (+) PETROLATUM, WHITE) [Concomitant]
     Indication: DRY EYE
     Dosage: 1 APPLICATION, QD
     Dates: start: 20140218
  22. METOLAZONE. [Concomitant]
     Active Substance: METOLAZONE
     Indication: CARDIAC FAILURE CONGESTIVE
     Dosage: 5 MG, QD
     Route: 048
     Dates: start: 20130810
  23. GLYCERIN (+) POLYSORBATE 80 [Concomitant]
     Indication: DRY EYE
     Dosage: 1 APPLICATION, QD
     Route: 047
     Dates: start: 20140218
  24. MINERAL OIL (+) PETROLATUM, WHITE [Concomitant]
     Indication: WOUND
     Dosage: 0.5 APPLICATION, BID
     Route: 061
     Dates: start: 20130812
  25. MINERAL OIL (+) PETROLATUM, WHITE [Concomitant]
     Indication: DRY EYE
  26. MELATONIN [Concomitant]
     Active Substance: MELATONIN
     Indication: ROUTINE HEALTH MAINTENANCE
     Dosage: 1 TABLET, QD
     Route: 048
     Dates: start: 20131212
  27. TRIAMCINOLONE [Concomitant]
     Active Substance: TRIAMCINOLONE
     Indication: PRURITUS
     Dosage: 1 APPLICATION, BID
     Route: 061
     Dates: start: 20140415

REACTIONS (2)
  - Cellulitis [Recovered/Resolved with Sequelae]
  - Cellulitis [Recovered/Resolved with Sequelae]

NARRATIVE: CASE EVENT DATE: 20141106
